FAERS Safety Report 6925976-X (Version None)
Quarter: 2010Q3

REPORT INFORMATION
  Report Type: 
  Country: None (occurrence: None)
  Receive Date: 20100816
  Receipt Date: 20100730
  Transmission Date: 20110219
  Serious: Yes (Other)
  Sender: FDA-Public Use
  Company Number: B0669934A

PATIENT
  Age: 35 Year
  Sex: Male

DRUGS (7)
  1. DILATREND [Suspect]
     Indication: PRODUCT USED FOR UNKNOWN INDICATION
     Route: 065
     Dates: start: 20081114
  2. CELLCEPT [Suspect]
     Dosage: 250MG TWICE PER DAY
     Route: 065
     Dates: start: 20100405
  3. BENZBROMARONE [Concomitant]
     Dates: start: 20090916
  4. ATORVASTATIN CALCIUM [Concomitant]
     Dates: start: 20081226
  5. TENORMIN [Concomitant]
     Dates: start: 20091027
  6. URSODIOL [Concomitant]
     Dates: start: 20100511
  7. METHYLPREDNISOLONE [Concomitant]
     Dates: start: 20081114

REACTIONS (1)
  - TRANSPLANT REJECTION [None]
